FAERS Safety Report 4466091-7 (Version None)
Quarter: 2004Q3

REPORT INFORMATION
  Report Type: 
  Country: None (occurrence: None)
  Receive Date: 20040930
  Receipt Date: 20040915
  Transmission Date: 20050211
  Serious: Yes (Other)
  Sender: FDA-Public Use
  Company Number: 2004-DE-04863GD

PATIENT
  Age: 12 Month

DRUGS (4)
  1. MEXILETINE (MEXILETINE HYDROCHLORIDE) (NR) (MEXILETINE-HCL) [Suspect]
     Indication: PROPHYLAXIS
  2. MEXILETINE (MEXILETINE HYDROCHLORIDE) (NR) (MEXILETINE-HCL) [Suspect]
     Indication: VENTRICULAR TACHYCARDIA
  3. AMIODARONE HCL [Suspect]
     Indication: PROPHYLAXIS
  4. AMIODARONE HCL [Suspect]
     Indication: VENTRICULAR TACHYCARDIA

REACTIONS (2)
  - DRUG INEFFECTIVE [None]
  - VENTRICULAR TACHYCARDIA [None]
